FAERS Safety Report 16544688 (Version 1)
Quarter: 2019Q3

REPORT INFORMATION
  Report Type: Spontaneous
  Country: US (occurrence: US)
  Receive Date: 20190708
  Receipt Date: 20190708
  Transmission Date: 20191004
  Serious: Yes (Death)
  Sender: FDA-Public Use
  Company Number: None

PATIENT
  Age: 71 Year
  Sex: Female
  Weight: 54 kg

DRUGS (10)
  1. VELCADE [Suspect]
     Active Substance: BORTEZOMIB
     Indication: PLASMA CELL MYELOMA
     Dosage: ?          OTHER FREQUENCY:DAYS 1, 4, 8, 11;?
     Route: 042
     Dates: start: 20190521, end: 20190708
  2. POMALYST [Concomitant]
     Active Substance: POMALIDOMIDE
  3. WARFARIN [Concomitant]
     Active Substance: WARFARIN
  4. PANTOPRAZOLE [Concomitant]
     Active Substance: PANTOPRAZOLE
  5. DOCUSATE SODIUM. [Concomitant]
     Active Substance: DOCUSATE SODIUM
  6. DEXAMETHASONE. [Concomitant]
     Active Substance: DEXAMETHASONE
  7. MEGESTROL [Concomitant]
     Active Substance: MEGESTROL
  8. MIDODRINE [Concomitant]
     Active Substance: MIDODRINE
  9. METOPROLOL. [Concomitant]
     Active Substance: METOPROLOL
  10. AMIODARONE [Concomitant]
     Active Substance: AMIODARONE

REACTIONS (1)
  - Death [None]

NARRATIVE: CASE EVENT DATE: 20190708
